FAERS Safety Report 4392170-9 (Version None)
Quarter: 2004Q3

REPORT INFORMATION
  Report Type: 
  Country: None (occurrence: None)
  Receive Date: 20040702
  Receipt Date: 20040401
  Transmission Date: 20050211
  Serious: Yes (Other)
  Sender: FDA-Public Use
  Company Number: 2004UW01891

PATIENT
  Age: 59 Year
  Sex: Female
  Weight: 66.2252 kg

DRUGS (8)
  1. CRESTOR [Suspect]
     Indication: BLOOD CHOLESTEROL INCREASED
     Dosage: 10 MG DAILY PO
     Route: 048
     Dates: start: 20040130, end: 20040203
  2. CARDIZEM [Concomitant]
  3. AVALIDE [Concomitant]
  4. GLUCOPHAGE [Concomitant]
  5. FLONASE [Concomitant]
  6. XANAX [Concomitant]
  7. ZITHROMAX [Concomitant]
  8. ULTRACET [Concomitant]

REACTIONS (4)
  - ABDOMINAL PAIN UPPER [None]
  - DYSPEPSIA [None]
  - FEELING HOT [None]
  - STOMACH DISCOMFORT [None]
